FAERS Safety Report 5695624-8 (Version None)
Quarter: 2008Q2

REPORT INFORMATION
  Report Type: 
  Country: None (occurrence: None)
  Receive Date: 20080407
  Receipt Date: 20080402
  Transmission Date: 20081010
  Serious: No
  Sender: FDA-Public Use
  Company Number: US-BAYER-200818903NA

PATIENT
  Age: 34 Year
  Sex: Female

DRUGS (3)
  1. MIRENA [Suspect]
     Indication: DRUG USE FOR UNKNOWN INDICATION
     Route: 015
     Dates: start: 20080326
  2. ANTIBIOTICS [Concomitant]
     Indication: PROPHYLAXIS
  3. ANESTHETICS NOS [Concomitant]
     Indication: TOOTHACHE
     Dates: start: 20080401, end: 20080401

REACTIONS (3)
  - ANXIETY [None]
  - COMPLICATION OF DEVICE INSERTION [None]
  - HYPERTENSION [None]
